FAERS Safety Report 17485923 (Version 3)
Quarter: 2020Q2

REPORT INFORMATION
  Report Type: Report from Study
  Country: None (occurrence: US)
  Receive Date: 20200303
  Receipt Date: 20200401
  Transmission Date: 20200713
  Serious: Yes (Hospitalization)
  Sender: FDA-Public Use
  Company Number: US-ABBVIE-20K-163-3297959-00

PATIENT
  Sex: Male

DRUGS (1)
  1. CREON [Suspect]
     Active Substance: PANCRELIPASE AMYLASE\PANCRELIPASE LIPASE\PANCRELIPASE PROTEASE
     Indication: PANCREATIC FAILURE
     Route: 048
     Dates: start: 20200101

REACTIONS (3)
  - Post procedural infection [Recovering/Resolving]
  - Abdominal hernia [Recovering/Resolving]
  - Ascites [Not Recovered/Not Resolved]

NARRATIVE: CASE EVENT DATE: 2020
